FAERS Safety Report 6966085-3 (Version None)
Quarter: 2010Q3

REPORT INFORMATION
  Report Type: 
  Country: None (occurrence: None)
  Receive Date: 20100903
  Receipt Date: 20100820
  Transmission Date: 20110219
  Serious: Yes (Hospitalization)
  Sender: FDA-Public Use
  Company Number: PHHY2010JP55568

PATIENT
  Sex: Male

DRUGS (7)
  1. TASIGNA [Suspect]
     Indication: CHRONIC MYELOID LEUKAEMIA
     Dosage: 400 MG, DAILY
     Route: 048
     Dates: start: 20090911, end: 20100801
  2. TAKEPRON [Concomitant]
     Dosage: 15 MG, UNK
     Route: 048
  3. ZYLORIC [Concomitant]
     Dosage: 100 MG, UNK
     Route: 048
  4. DIFLUCAN [Concomitant]
     Dosage: 100 MG, UNK
     Route: 048
  5. MAGMITT [Concomitant]
     Dosage: 500 MG, UNK
     Route: 048
  6. LOXOPROFEN [Concomitant]
     Dosage: UNK
     Route: 048
  7. SHAKUYAKUKANZOUTOU [Concomitant]
     Indication: PROPHYLAXIS
     Dosage: 7.5 G, UNK
     Route: 048
     Dates: start: 20091030

REACTIONS (1)
  - INTERSTITIAL LUNG DISEASE [None]
